FAERS Safety Report 4946166-6 (Version None)
Quarter: 2006Q1

REPORT INFORMATION
  Report Type: 
  Country: None (occurrence: None)
  Receive Date: 20060118
  Receipt Date: 20051012
  Transmission Date: 20060701
  Serious: Yes (Other)
  Sender: FDA-Public Use
  Company Number: US-JNJFOC-20050600647

PATIENT
  Age: 78 Year
  Sex: Female
  Weight: 74.3899 kg

DRUGS (13)
  1. DOXIL [Suspect]
     Indication: SARCOMA
     Dosage: 89 MG, INTRAVENOUS
     Route: 042
     Dates: start: 20050331, end: 20050511
  2. DOXIL [Suspect]
  3. LASIX [Concomitant]
  4. ASPIRIN [Concomitant]
  5. ATENOLOL [Concomitant]
  6. NORVASC [Concomitant]
  7. IMDUR [Concomitant]
  8. ACCUPRIL [Concomitant]
  9. LIPITOR [Concomitant]
  10. ZYRETEC (CETIRIZINE HYDROCHLORIDE) [Concomitant]
  11. PERCOCET [Concomitant]
  12. ATIVAN [Concomitant]
  13. DOCUSATE (DOCUSATE) [Concomitant]

REACTIONS (5)
  - ABDOMINAL NEOPLASM [None]
  - ERYTHEMA [None]
  - RASH [None]
  - SARCOMA [None]
  - SKIN LESION [None]
